FAERS Safety Report 5280794-6 (Version None)
Quarter: 2007Q1

REPORT INFORMATION
  Report Type: 
  Country: None (occurrence: None)
  Receive Date: 20070329
  Receipt Date: 20070315
  Transmission Date: 20070707
  Serious: Yes (Life-Threatening)
  Sender: FDA-Public Use
  Company Number: SE-ELI_LILLY_AND_COMPANY-SE200703003646

PATIENT
  Age: 45 Year
  Sex: Female

DRUGS (7)
  1. CYMBALTA [Suspect]
     Indication: MYOFASCIAL PAIN SYNDROME
     Dosage: 80 MG, DAILY (1/D)
     Route: 048
     Dates: end: 20061123
  2. CYMBALTA [Suspect]
     Dosage: 60 MG, DAILY (1/D)
     Route: 048
     Dates: start: 20061001
  3. TRAMADOL ALPHARMA [Concomitant]
     Dosage: 50 MG, UNK
  4. STILNOX [Concomitant]
     Dosage: 10 MG, UNK
  5. LANSOPRAZOLE [Concomitant]
     Dosage: 15 MG, UNK
  6. CETIRIZIN ALPHARMA [Concomitant]
     Dosage: 15 MG, UNK
  7. ALVEDON [Concomitant]
     Dosage: 1 G, UNK

REACTIONS (2)
  - JAUNDICE [None]
  - STOMACH DISCOMFORT [None]
